FAERS Safety Report 9310891 (Version 2)
Quarter: 2013Q3

REPORT INFORMATION
  Report Type: Spontaneous
  Country: JP (occurrence: None)
  Receive Date: 20130228
  Receipt Date: 20130829
  Transmission Date: 20140515
  Serious: Yes (Life-Threatening, Hospitalization)
  Sender: FDA-Public Use
  Company Number: TCI2013A00958

PATIENT
  Age: 67 Year
  Sex: Male

DRUGS (7)
  1. NESINA [Suspect]
     Indication: DIABETES MELLITUS MANAGEMENT
     Route: 048
     Dates: start: 20120523, end: 20121128
  2. TAKEPRON OD TABLETS 15 (LANSOPRAZOLE) [Concomitant]
  3. BAYASPIRIN (ACETYLSALICYLIC ACID) (ACETYLSALICYLIC ACID) [Concomitant]
  4. LIPOVAS (SIMVASTATIN) [Concomitant]
  5. ARTIST (CARVEDILOL) [Concomitant]
  6. CALCIUM CARBONATE [Concomitant]
  7. PURSENNID (SENNOSIDE A+B CALCIUM) [Concomitant]

REACTIONS (3)
  - Pancreatitis acute [None]
  - Haemodialysis [None]
  - Pancreatic mass [None]
